FAERS Safety Report 4698060-6 (Version None)
Quarter: 2005Q2

REPORT INFORMATION
  Report Type: 
  Country: None (occurrence: None)
  Receive Date: 20050622
  Receipt Date: 20050622
  Transmission Date: 20051028
  Serious: Yes (Other)
  Sender: FDA-Public Use
  Company Number: None

PATIENT
  Sex: Female
  Weight: 55.8 kg

DRUGS (11)
  1. RITUXIMAB [Suspect]
     Indication: HAEMATOPOIETIC NEOPLASM
     Dosage: IV 375 MG/M2 ON DAYS -2 AND 0
     Route: 042
     Dates: start: 20050309
  2. RITUXIMAB [Suspect]
     Indication: NEOPLASM MALIGNANT
     Dosage: IV 375 MG/M2 ON DAYS -2 AND 0
     Route: 042
     Dates: start: 20050309
  3. VINCRISTINE [Suspect]
     Dosage: IV 2.0 MG/M2 ON DAY 0
     Route: 042
  4. PREDNISONE TAB [Suspect]
     Dosage: 30 MG/M2 TWICE DAILY ON DAYS 0-4 INCLUSIVE AND THEN TAPER TO ZERO OVER 3 DAYS
  5. METHOTREXATE [Suspect]
     Dosage: IV 3000 MG/M2 AS IV INFUSION OVER 3 HOURS ON DAY 0
     Route: 042
  6. LEUCOVORIN [Suspect]
     Dosage: 15 MG/M2 Q 6  HRS (FOR A TOTAL OF 12 DOSES OR AS REQUIRED DEPENDING ON MTX LEVELS
  7. CYCLOPHOSPHAMIDE [Suspect]
     Dosage: IV 250 MG/M2/DOSE Q 12 HRS OVER 15 MIN ON DAYS 1-3
  8. DOXORUBICIN [Suspect]
     Dosage: IV 60 MG/M2 AS A 30-60 MIN INFUSION AFTER FIRST DOSE OF CPM
     Route: 042
  9. G-CSF [Suspect]
     Dosage: SQ 5 MICROGRAMS/KG/D ON DAYS 6-20 INCLUSIVE UNTIL THE POST NADIR REACHES 3000/MM303/09/2005
     Route: 058
  10. METHOTREXATE [Suspect]
  11. HYDROCORTISONE [Suspect]
     Dosage: 15 MG EACH ON DAY 1 AND 5.

REACTIONS (12)
  - ANXIETY [None]
  - DIZZINESS [None]
  - ENTEROCOLITIS INFECTIOUS [None]
  - FALL [None]
  - HEAD INJURY [None]
  - HEADACHE [None]
  - HYPERTENSION [None]
  - MUCOSAL INFLAMMATION [None]
  - ORTHOSTATIC HYPOTENSION [None]
  - PAIN [None]
  - POST PROCEDURAL COMPLICATION [None]
  - STOMATITIS [None]
